FAERS Safety Report 4310528-0 (Version None)
Quarter: 2004Q1

REPORT INFORMATION
  Report Type: 
  Country: None (occurrence: None)
  Receive Date: 20040303
  Receipt Date: 20031229
  Transmission Date: 20041129
  Serious: Yes (Hospitalization)
  Sender: FDA-Public Use
  Company Number: CA-GLAXOSMITHKLINE-A0490894A

PATIENT
  Age: 58 Year
  Sex: Female
  Weight: 75 kg

DRUGS (11)
  1. TOPOTECAN [Suspect]
     Indication: OVARIAN CANCER
     Dosage: 2MGM2 SEE DOSAGE TEXT
     Route: 042
     Dates: start: 20031223, end: 20031223
  2. GEMCITABINE [Suspect]
     Indication: OVARIAN CANCER
     Dosage: 800MGM2 SEE DOSAGE TEXT
     Route: 042
     Dates: start: 20031223, end: 20031223
  3. FLOVENT [Concomitant]
     Indication: ASTHMA
     Dosage: 2PUFF PER DAY
     Route: 048
     Dates: end: 20031225
  4. ACTIFED [Concomitant]
     Indication: HYPERSENSITIVITY
     Dosage: 2TAB AS REQUIRED
     Route: 048
  5. CELECOXIB [Concomitant]
     Indication: ARTHRITIS
     Dosage: 100MG FOUR TIMES PER DAY
     Route: 048
     Dates: end: 20031225
  6. ONDANSETRON HCL [Concomitant]
     Indication: PROPHYLAXIS
     Dosage: 8MG TWICE PER DAY
     Route: 048
     Dates: start: 20030903, end: 20031225
  7. DEXAMETHASONE [Concomitant]
     Indication: PROPHYLAXIS
     Dosage: 8MG PER DAY
     Route: 048
     Dates: start: 20030903, end: 20031223
  8. PROCHLORPERAZINE [Concomitant]
     Indication: PROPHYLAXIS
     Dosage: 10MG SIX TIMES PER DAY
     Route: 048
     Dates: start: 20030910, end: 20031227
  9. ACETAMINOPHEN [Concomitant]
     Indication: HEADACHE
     Dosage: 1TAB AS REQUIRED
     Route: 048
     Dates: start: 20030903, end: 20031225
  10. METHOCARBAMOL [Concomitant]
     Indication: ARTHRALGIA
     Dosage: 1TAB AS REQUIRED
     Route: 048
     Dates: start: 20030903, end: 20031225
  11. DIPHENHYDRAMINE HCL [Concomitant]
     Dosage: 50MG SIX TIMES PER DAY
     Route: 048
     Dates: start: 20031228, end: 20031229

REACTIONS (6)
  - ABDOMINAL PAIN UPPER [None]
  - HEPATIC CYST [None]
  - HEPATIC ENZYME INCREASED [None]
  - HEPATITIS [None]
  - PAINFUL RESPIRATION [None]
  - PYREXIA [None]
